FAERS Safety Report 4776848-0 (Version None)
Quarter: 2005Q3

REPORT INFORMATION
  Report Type: 
  Country: None (occurrence: None)
  Receive Date: 20050921
  Receipt Date: 20050913
  Transmission Date: 20060218
  Serious: Yes (Hospitalization, Other)
  Sender: FDA-Public Use
  Company Number: 2005127362

PATIENT
  Age: 16 Year
  Sex: Female
  Weight: 55.7924 kg

DRUGS (2)
  1. DEPO-PROVERA [Suspect]
     Indication: CONTRACEPTION
     Dosage: SEE IMAGE, INTRAMUSCULAR
     Route: 030
     Dates: start: 20020212, end: 20020212
  2. DEPO-PROVERA [Suspect]
     Indication: CONTRACEPTION
     Dosage: SEE IMAGE, INTRAMUSCULAR
     Route: 030
     Dates: start: 20040201, end: 20040201

REACTIONS (13)
  - ALOPECIA [None]
  - AMENORRHOEA [None]
  - ANOREXIA [None]
  - DENTAL CARIES [None]
  - DIZZINESS [None]
  - GASTRIC INFECTION [None]
  - HEADACHE [None]
  - KIDNEY INFECTION [None]
  - MENSTRUAL DISORDER [None]
  - MENSTRUATION IRREGULAR [None]
  - MOOD SWINGS [None]
  - NAUSEA [None]
  - WEIGHT FLUCTUATION [None]
